FAERS Safety Report 22223637 (Version 1)
Quarter: 2023Q2

REPORT INFORMATION
  Report Type: Spontaneous
  Country: JP (occurrence: JP)
  Receive Date: 20230418
  Receipt Date: 20230418
  Transmission Date: 20230722
  Serious: Yes (Death, Life-Threatening, Other)
  Sender: FDA-Public Use
  Company Number: JP-TAIHO-2023-002751

PATIENT
  Age: 71 Year
  Sex: Male
  Weight: 62.3 kg

DRUGS (6)
  1. ABRAXANE [Suspect]
     Active Substance: PACLITAXEL
     Indication: Gastric cancer
     Dosage: DETAILS NOT REPORTED?DAILY DOSE: 165 MILLIGRAM(S)
     Route: 041
     Dates: start: 20230201
  2. TS-1 [Suspect]
     Active Substance: GIMERACIL\OTERACIL\TEGAFUR
     Indication: Gastric cancer
     Dosage: NI
     Route: 048
     Dates: start: 20220817, end: 20230131
  3. OPDIVO [Concomitant]
     Active Substance: NIVOLUMAB
     Indication: Gastric cancer
     Dosage: NI
     Dates: start: 20220817, end: 20230131
  4. CYRAMZA [Concomitant]
     Active Substance: RAMUCIRUMAB
     Indication: Gastric cancer
     Dosage: NI
     Route: 042
     Dates: start: 20230201
  5. OXALIPLATIN [Concomitant]
     Active Substance: OXALIPLATIN
     Indication: Gastric cancer
     Dosage: NI
     Dates: start: 20220817, end: 20230131
  6. UNSPECIFIED INGREDIENT [Concomitant]
     Active Substance: UNSPECIFIED INGREDIENT
     Indication: Product used for unknown indication
     Dosage: NI
     Dates: start: 20230206

REACTIONS (2)
  - Neutropenia [Fatal]
  - Disseminated intravascular coagulation [Fatal]

NARRATIVE: CASE EVENT DATE: 20230209
